FAERS Safety Report 5086459-8 (Version None)
Quarter: 2006Q3

REPORT INFORMATION
  Report Type: 
  Country: None (occurrence: None)
  Receive Date: 20060703
  Receipt Date: 20050913
  Transmission Date: 20061208
  Serious: No
  Sender: FDA-Public Use
  Company Number: 2005S1009156

PATIENT
  Age: 45 Year
  Sex: Male

DRUGS (7)
  1. CLOZAPINE [Suspect]
     Indication: SCHIZOPHRENIA
     Dosage: 100 MG;TID;PO
     Route: 048
     Dates: start: 20031201
  2. FOLIC ACID [Concomitant]
  3. HALOPERIDOL [Concomitant]
  4. DISULFIRAM [Concomitant]
  5. BENZTROPEINE [Concomitant]
  6. NIFEDIPINE [Concomitant]
  7. THIAMINE HCL [Concomitant]

REACTIONS (1)
  - GRANULOCYTOPENIA [None]
